FAERS Safety Report 6968237-5 (Version None)
Quarter: 2010Q3

REPORT INFORMATION
  Report Type: 
  Country: None (occurrence: None)
  Receive Date: 20100907
  Receipt Date: 20100826
  Transmission Date: 20110219
  Serious: Yes (Hospitalization)
  Sender: FDA-Public Use
  Company Number: JP-ROCHE-707772

PATIENT
  Sex: Female

DRUGS (7)
  1. CAPECITABINE [Suspect]
     Indication: COLON CANCER
     Dosage: DRUG: XELODA 300
     Route: 048
     Dates: start: 20090611, end: 20090624
  2. CAPECITABINE [Suspect]
     Route: 048
     Dates: start: 20090702, end: 20090710
  3. CAPECITABINE [Suspect]
     Route: 048
     Dates: start: 20090903, end: 20090916
  4. CAPECITABINE [Suspect]
     Dosage: DOSAGE IS UNCERTAIN.
     Route: 048
     Dates: start: 20090924, end: 20090924
  5. CAPECITABINE [Suspect]
     Dosage: DOSAGE IS UNCERTAIN.
     Route: 048
     Dates: start: 20091126, end: 20091202
  6. JUZENTAIHOTO [Concomitant]
     Dosage: FORM: GRANULATED POWDER., HERBAL MEDICINE
     Route: 048
     Dates: start: 20090924
  7. PYDOXAL [Concomitant]
     Dosage: DRUG: PYDOXAL TAB
     Route: 048
     Dates: start: 20090611

REACTIONS (5)
  - DECREASED APPETITE [None]
  - INTESTINAL OBSTRUCTION [None]
  - NEUTROPHIL COUNT DECREASED [None]
  - PALMAR-PLANTAR ERYTHRODYSAESTHESIA SYNDROME [None]
  - PHARYNGEAL ULCERATION [None]
